FAERS Safety Report 11045984 (Version 1)
Quarter: 2015Q2

REPORT INFORMATION
  Report Type: Other
  Country: GB (occurrence: GB)
  Receive Date: 20150417
  Receipt Date: 20150417
  Transmission Date: 20150821
  Serious: Yes (Other)
  Sender: FDA-Public Use
  Company Number: GB-MACLEODS PHARMACEUTICALS US LTD-MAC2015001695

PATIENT

DRUGS (2)
  1. THYROXINE [Concomitant]
     Active Substance: LEVOTHYROXINE
     Indication: PRODUCT USED FOR UNKNOWN INDICATION
     Route: 065
  2. PANTOPRAZOLE 20 MG GASTRO-RESISTANT TABLETS [Suspect]
     Active Substance: PANTOPRAZOLE SODIUM
     Dosage: 20 MG, UNK
     Route: 048

REACTIONS (3)
  - Anxiety [Recovered/Resolved]
  - Depression [Unknown]
  - Tinnitus [Unknown]

NARRATIVE: CASE EVENT DATE: 201403
